FAERS Safety Report 10224112 (Version 3)
Quarter: 2014Q3

REPORT INFORMATION
  Report Type: Report from Study
  Country: JP (occurrence: JP)
  Receive Date: 20140609
  Receipt Date: 20140702
  Transmission Date: 20150326
  Serious: Yes (Other)
  Sender: FDA-Public Use
  Company Number: PHHY2014JP064668

PATIENT
  Sex: Male

DRUGS (21)
  1. LONASEN [Concomitant]
     Active Substance: BLONANSERIN
     Dosage: 4 MG, DAILY
     Route: 048
     Dates: end: 20130828
  2. ROHYPNOL [Concomitant]
     Active Substance: FLUNITRAZEPAM
     Dosage: 1 MG, UNK
     Route: 048
     Dates: end: 20130911
  3. CLOZARIL [Suspect]
     Active Substance: CLOZAPINE
     Dosage: 25 MG,DAILY
     Route: 048
     Dates: start: 20130808, end: 20130810
  4. CLOZARIL [Suspect]
     Active Substance: CLOZAPINE
     Dosage: 50 MG, DAILY
     Route: 048
     Dates: start: 20130811, end: 20130813
  5. CLOZARIL [Suspect]
     Active Substance: CLOZAPINE
     Dosage: 100 MG, DAILY
     Route: 048
     Dates: start: 20130816, end: 20130817
  6. CLOZARIL [Suspect]
     Active Substance: CLOZAPINE
     Dosage: 150 MG, DAY
     Dates: start: 20130828, end: 20130903
  7. LONASEN [Concomitant]
     Active Substance: BLONANSERIN
     Dosage: 8 MG,DAILY
     Route: 048
  8. CLOZARIL [Suspect]
     Active Substance: CLOZAPINE
     Dosage: 125 MG,DAILY
     Route: 048
     Dates: start: 20130818, end: 20130827
  9. CLOZARIL [Suspect]
     Active Substance: CLOZAPINE
     Dosage: 175MG, DAILY
     Route: 048
     Dates: start: 20130904, end: 20130910
  10. CLOZARIL [Suspect]
     Active Substance: CLOZAPINE
     Dosage: 75 MG, DAILY
     Route: 048
     Dates: start: 20130814, end: 20130815
  11. CLOZARIL [Suspect]
     Active Substance: CLOZAPINE
     Dosage: 200 MG, DAILY
     Route: 048
     Dates: start: 20130911, end: 20130930
  12. CLOZARIL [Suspect]
     Active Substance: CLOZAPINE
     Dosage: 150 MG, DAILY
     Route: 048
     Dates: start: 20131022
  13. DEPAKENE [Concomitant]
     Active Substance: VALPROIC ACID
     Indication: SCHIZOPHRENIA, PARANOID TYPE
     Dosage: 600 MG, UNK
     Route: 048
  14. WYPAX [Concomitant]
     Active Substance: LORAZEPAM
     Dosage: 1.5 MG, UNK
     Route: 048
     Dates: end: 20130911
  15. CLOZARIL [Suspect]
     Active Substance: CLOZAPINE
     Dosage: 225 MG, DAILY
     Route: 048
     Dates: start: 20131001, end: 20131007
  16. LONASEN [Concomitant]
     Active Substance: BLONANSERIN
     Indication: SCHIZOPHRENIA, PARANOID TYPE
     Dosage: 12 MG, DAILY
     Route: 048
     Dates: start: 20130807
  17. ROHYPNOL [Concomitant]
     Active Substance: FLUNITRAZEPAM
     Dosage: 2 MG, UNK
     Route: 048
  18. CLOZARIL [Suspect]
     Active Substance: CLOZAPINE
     Indication: SCHIZOPHRENIA, PARANOID TYPE
     Dosage: 12.5 MG,DAILY
     Route: 048
     Dates: start: 20130807, end: 20130807
  19. CLOZARIL [Suspect]
     Active Substance: CLOZAPINE
     Dosage: 200 MG, DAILY
     Route: 048
     Dates: start: 20131008, end: 20131014
  20. CLOZARIL [Suspect]
     Active Substance: CLOZAPINE
     Dosage: 175 MG, DAILY
     Route: 048
     Dates: start: 20131015, end: 20131021
  21. WYPAX [Concomitant]
     Active Substance: LORAZEPAM
     Indication: SCHIZOPHRENIA, PARANOID TYPE
     Dosage: 3 MG, UNK
     Route: 048

REACTIONS (4)
  - Diabetes mellitus [Not Recovered/Not Resolved]
  - Weight increased [Unknown]
  - Blood pressure increased [Unknown]
  - Increased appetite [Unknown]
